FAERS Safety Report 14948849 (Version 1)
Quarter: 2018Q2

REPORT INFORMATION
  Report Type: Report from Study
  Country: FR (occurrence: FR)
  Receive Date: 20180529
  Receipt Date: 20180529
  Transmission Date: 20180711
  Serious: Yes (Hospitalization)
  Sender: FDA-Public Use
  Company Number: FR-SHIRE-FR201819349

PATIENT

DRUGS (5)
  1. IMODIUM [Concomitant]
     Active Substance: LOPERAMIDE HYDROCHLORIDE
     Indication: SHORT-BOWEL SYNDROME
  2. QUESTRAN [Concomitant]
     Active Substance: CHOLESTYRAMINE
     Indication: ANORECTAL DISCOMFORT
  3. MITOSYL [Concomitant]
     Indication: ANORECTAL DISCOMFORT
  4. TEDUGLUTIDE [Suspect]
     Active Substance: TEDUGLUTIDE
     Indication: SHORT-BOWEL SYNDROME
     Dosage: 0.05 MG/KG, DOSAGE PER WEEK 7
     Route: 065
     Dates: start: 20160324
  5. CALCIUM CITRATE [Concomitant]
     Active Substance: CALCIUM CITRATE
     Indication: SUPPLEMENTATION THERAPY

REACTIONS (1)
  - Underweight [Not Recovered/Not Resolved]

NARRATIVE: CASE EVENT DATE: 201712
